FAERS Safety Report 23473681 (Version 2)
Quarter: 2024Q1

REPORT INFORMATION
  Report Type: Report from Study
  Country: GB (occurrence: GB)
  Receive Date: 20240203
  Receipt Date: 20240220
  Transmission Date: 20240410
  Serious: Yes (Life-Threatening, Hospitalization, Disabling, Other)
  Sender: FDA-Public Use
  Company Number: None

PATIENT
  Age: 72 Year
  Sex: Female
  Weight: 44 kg

DRUGS (9)
  1. AMITRIPTYLINE [Suspect]
     Active Substance: AMITRIPTYLINE
     Indication: Pain
     Dosage: 10 MG ONCE A DAY AT NIGH
     Dates: start: 20230929
  2. PROCHLORPERAZINE [Suspect]
     Active Substance: PROCHLORPERAZINE
     Indication: Nausea
     Dosage: 5 MG THREE TIMES A DAY (AS REQUIRED)
     Dates: start: 20230929
  3. VALACYCLOVIR HYDROCHLORIDE [Suspect]
     Active Substance: VALACYCLOVIR HYDROCHLORIDE
     Indication: Herpes zoster
     Dosage: 1000 MG THREE TIMES/DAY
     Dates: start: 20230927
  4. AMLODIPINE [Concomitant]
     Active Substance: AMLODIPINE BESYLATE
     Indication: Hypertension
  5. GABAPENTIN [Concomitant]
     Active Substance: GABAPENTIN
  6. ONEALFA [Concomitant]
     Active Substance: ALFACALCIDOL
     Indication: End stage renal disease
  7. ASCORBIC ACID\BIOTIN\CALCIUM PANTOTHENATE\CYANOCOBALAMIN\FOLIC ACID\NI [Concomitant]
     Active Substance: ASCORBIC ACID\BIOTIN\CALCIUM PANTOTHENATE\CYANOCOBALAMIN\FOLIC ACID\NIACINAMIDE\PYRIDOXINE HYDROCHLO
     Indication: Haemodialysis
  8. TINZAPARIN [Concomitant]
     Active Substance: TINZAPARIN
     Indication: Dialysis
  9. VITAMIN D NOS [Concomitant]
     Active Substance: VITAMIN D NOS
     Indication: End stage renal disease

REACTIONS (2)
  - Cognitive disorder [Recovered/Resolved with Sequelae]
  - Medication error [Unknown]

NARRATIVE: CASE EVENT DATE: 20230928
